FAERS Safety Report 9103633 (Version 1)
Quarter: 2013Q1

REPORT INFORMATION
  Report Type: Spontaneous
  Country: CO (occurrence: CO)
  Receive Date: 20130219
  Receipt Date: 20130219
  Transmission Date: 20140127
  Serious: Yes (Death)
  Sender: FDA-Public Use
  Company Number: CO-ASTRAZENECA-2013SE10957

PATIENT
  Age: 29 Day
  Sex: Male
  Weight: 2.5 kg

DRUGS (2)
  1. SYNAGIS [Suspect]
     Indication: PREMATURE BABY
     Route: 030
     Dates: start: 20121218, end: 20121218
  2. PEDIAVIT [Concomitant]

REACTIONS (2)
  - Haematemesis [Fatal]
  - Cardio-respiratory arrest [Fatal]
